FAERS Safety Report 8478696-7 (Version None)
Quarter: 2012Q2

REPORT INFORMATION
  Report Type: 
  Country: None (occurrence: None)
  Receive Date: 20120629
  Receipt Date: 20120626
  Transmission Date: 20120825
  Serious: Yes (Other)
  Sender: FDA-Public Use
  Company Number: US-JNJFOC-20120306849

PATIENT
  Sex: Female
  Weight: 94.35 kg

DRUGS (17)
  1. PREDNISONE TAB [Suspect]
     Dates: start: 20120615
  2. METHOTREXATE [Concomitant]
     Route: 065
  3. SIMPONI [Suspect]
     Indication: RHEUMATOID ARTHRITIS
     Route: 058
     Dates: start: 20110101, end: 20120301
  4. ASPIRIN [Concomitant]
     Dates: start: 20120416
  5. IBUPROFEN [Concomitant]
     Dates: start: 20120416
  6. IBUPROFEN [Concomitant]
     Dates: start: 20101221
  7. IBUPROFEN [Concomitant]
     Dates: start: 20120118
  8. ASPIRIN [Concomitant]
     Dates: start: 20110608
  9. PREDNISONE TAB [Suspect]
     Dates: start: 20120118
  10. PREDNISONE TAB [Suspect]
     Dates: start: 20100630
  11. IBUPROFEN [Concomitant]
     Dates: start: 20110608
  12. PREDNISONE TAB [Suspect]
     Indication: RHEUMATOID ARTHRITIS
     Dates: start: 20120416
  13. PREDNISONE TAB [Suspect]
     Dates: start: 20101221, end: 20110608
  14. ASPIRIN [Concomitant]
     Dates: start: 20120118
  15. IBUPROFEN [Concomitant]
     Dates: start: 20100630
  16. ASPIRIN [Concomitant]
     Dates: start: 20100630
  17. ASPIRIN [Concomitant]
     Dates: start: 20101221

REACTIONS (8)
  - MUSCULAR WEAKNESS [None]
  - SWELLING [None]
  - EXERCISE TOLERANCE DECREASED [None]
  - DEVICE FAILURE [None]
  - UNDERDOSE [None]
  - THERAPEUTIC RESPONSE DECREASED [None]
  - PAIN [None]
  - WEIGHT INCREASED [None]
